FAERS Safety Report 19645731 (Version 1)
Quarter: 2021Q3

REPORT INFORMATION
  Report Type: Spontaneous
  Country: US (occurrence: US)
  Receive Date: 20210801
  Receipt Date: 20210801
  Transmission Date: 20211014
  Serious: Yes (Other)
  Sender: FDA-Public Use
  Company Number: None

PATIENT
  Age: 20 Year
  Sex: Female
  Weight: 51.75 kg

DRUGS (1)
  1. MAKENA [Suspect]
     Active Substance: HYDROXYPROGESTERONE CAPROATE
     Indication: POSTPONEMENT OF PRETERM DELIVERY
     Route: 058

REACTIONS (6)
  - Injection site hypoaesthesia [None]
  - Dizziness [None]
  - Injection site swelling [None]
  - Injection site erythema [None]
  - Injection site pain [None]
  - Rash [None]

NARRATIVE: CASE EVENT DATE: 20210721
